FAERS Safety Report 11668782 (Version 1)
Quarter: 2015Q4

REPORT INFORMATION
  Report Type: Spontaneous
  Country: US (occurrence: US)
  Receive Date: 20151027
  Receipt Date: 20151027
  Transmission Date: 20160304
  Serious: No
  Sender: FDA-Public Use
  Company Number: US-ELI_LILLY_AND_COMPANY-US201003007766

PATIENT
  Sex: Female

DRUGS (1)
  1. FORTEO [Suspect]
     Active Substance: TERIPARATIDE
     Dates: start: 200903

REACTIONS (10)
  - Palpitations [Unknown]
  - Constipation [Unknown]
  - Muscular weakness [Unknown]
  - Abdominal pain upper [Unknown]
  - Drug dose omission [Unknown]
  - Contusion [Unknown]
  - Asthenia [Unknown]
  - Insomnia [Unknown]
  - Nausea [Unknown]
  - Muscle spasms [Unknown]
